FAERS Safety Report 24709607 (Version 2)
Quarter: 2025Q3

REPORT INFORMATION
  Report Type: Spontaneous
  Country: CN (occurrence: CN)
  Receive Date: 20241209
  Receipt Date: 20250809
  Transmission Date: 20251020
  Serious: Yes (Hospitalization, Other)
  Sender: ALEXION PHARMACEUTICALS
  Company Number: CN-ASTRAZENECA-202412CHN002018CN

PATIENT
  Age: 83 Year
  Sex: Male
  Weight: 62 kg

DRUGS (2)
  1. DAPAGLIFLOZIN [Suspect]
     Active Substance: DAPAGLIFLOZIN
     Indication: Cardiac failure
     Dosage: 10.000 MILLIGRAM, QD
     Dates: start: 20241115, end: 20241201
  2. PIPERACILLIN [Concomitant]
     Active Substance: PIPERACILLIN
     Dosage: 3 GRAM, Q8H
     Route: 065

REACTIONS (2)
  - Urinary tract infection fungal [Unknown]
  - Cardiac failure acute [Unknown]

NARRATIVE: CASE EVENT DATE: 20241124
